FAERS Safety Report 7424285-2 (Version None)
Quarter: 2011Q2

REPORT INFORMATION
  Report Type: 
  Country: None (occurrence: None)
  Receive Date: 20110419
  Receipt Date: 20110414
  Transmission Date: 20111010
  Serious: Yes (Other)
  Sender: FDA-Public Use
  Company Number: BR-PFIZER INC-2011015469

PATIENT
  Age: 85 Year
  Sex: Female

DRUGS (12)
  1. CITALOR [Concomitant]
     Dosage: UNK
     Dates: start: 20011201
  2. LYRICA [Suspect]
     Indication: BACK PAIN
     Dosage: 75 MG, 1X/DAY
     Route: 048
     Dates: start: 20101201, end: 20110101
  3. TICLID [Concomitant]
     Dosage: UNK
     Dates: start: 20020101
  4. PANTOPRAZOLE SODIUM [Concomitant]
     Dosage: UNK
     Dates: start: 20020101
  5. DOMPERIDONE [Concomitant]
     Dosage: UNK
     Dates: start: 20020101
  6. FRONTAL [Concomitant]
     Dosage: 0.5 MG, 1X/DAY
     Dates: start: 20010101
  7. GLUCOSAMINE HYDROCHLORIDE/CHONDROITIN SULFATE [Concomitant]
     Dosage: UNK
     Dates: start: 20020101
  8. CYMBALTA [Concomitant]
     Dosage: UNK
     Dates: start: 20100101
  9. ATACAND [Concomitant]
     Dosage: UNK
     Dates: start: 20020101
  10. HYDERGINE [Concomitant]
     Dosage: UNK
     Dates: start: 20020101
  11. HYGROTON [Concomitant]
     Dosage: UNK
     Dates: start: 20020101
  12. FRONTAL [Concomitant]
     Dosage: 0.5 MG, 3X/DAY

REACTIONS (7)
  - OEDEMA PERIPHERAL [None]
  - PARAESTHESIA [None]
  - HEARING IMPAIRED [None]
  - EMOTIONAL DISORDER [None]
  - COORDINATION ABNORMAL [None]
  - JOINT SWELLING [None]
  - HALLUCINATION [None]
